FAERS Safety Report 15748753 (Version 1)
Quarter: 2018Q4

REPORT INFORMATION
  Report Type: Spontaneous
  Country: US (occurrence: US)
  Receive Date: 20181221
  Receipt Date: 20181221
  Transmission Date: 20190205
  Serious: No
  Sender: FDA-Public Use
  Company Number: US-RECKITT BENCKISER HEALTHCARE INT LIMITED-RB-84508-2018

PATIENT
  Age: 7 Year
  Sex: Female

DRUGS (2)
  1. DELSYM [Suspect]
     Active Substance: DEXTROMETHORPHAN
     Dosage: 5 ML, UNK
     Route: 065
     Dates: start: 20180301, end: 20180302
  2. DELSYM [Suspect]
     Active Substance: DEXTROMETHORPHAN
     Indication: PRODUCT USED FOR UNKNOWN INDICATION
     Dosage: 10 ML, BID
     Route: 065
     Dates: start: 20180301, end: 20180302

REACTIONS (1)
  - Incorrect product administration duration [Unknown]
